FAERS Safety Report 8889427 (Version 2)
Quarter: 2013Q2

REPORT INFORMATION
  Report Type: Spontaneous
  Country: US (occurrence: None)
  Receive Date: 20120504
  Receipt Date: 20120507
  Transmission Date: 20140414
  Serious: Yes (Hospitalization, Disabling)
  Sender: FDA-Public Use
  Company Number: PHEH2009US18421

PATIENT
  Age: 40 Year
  Sex: Female

DRUGS (4)
  1. TRILEPTAL [Suspect]
  2. LAMICTAL [Suspect]
     Indication: BIPOLAR DISORDER
     Dosage: UNK
     Dates: start: 20091101, end: 20091210
  3. ZANTAC (RANITIDINE HYDROCHLORIDE) [Suspect]
  4. PINDOLOL [Suspect]

REACTIONS (5)
  - Stevens-Johnson syndrome [None]
  - Drug interaction [None]
  - Pharyngeal oedema [None]
  - Dysphagia [None]
  - Swollen tongue [None]
